FAERS Safety Report 14334602 (Version 3)
Quarter: 2018Q1

REPORT INFORMATION
  Report Type: Spontaneous
  Country: BR (occurrence: BR)
  Receive Date: 20171228
  Receipt Date: 20180109
  Transmission Date: 20180509
  Serious: Yes (Disabling, Other)
  Sender: FDA-Public Use
  Company Number: BR-009507513-1712BRA012014

PATIENT
  Age: 91 Year
  Sex: Female
  Weight: 28 kg

DRUGS (10)
  1. INVANZ [Suspect]
     Active Substance: ERTAPENEM SODIUM
     Dosage: UNK
     Route: 030
     Dates: start: 20171218, end: 20171227
  2. LIDOCAINE. [Concomitant]
     Active Substance: LIDOCAINE
     Indication: ANALGESIC THERAPY
     Dosage: UNK
     Dates: start: 20171218, end: 20171219
  3. CLAVULIN [Concomitant]
     Active Substance: AMOXICILLIN\CLAVULANIC ACID
     Indication: URINARY TRACT INFECTION
     Dosage: UNK
     Route: 042
  4. QUETROS [Concomitant]
     Active Substance: QUETIAPINE
     Dosage: 4 TABLETS AT LUNCH AND 2 TABLETS AT NIGHT
     Route: 048
  5. INVANZ [Suspect]
     Active Substance: ERTAPENEM SODIUM
     Dosage: 1 AMPOULE
     Route: 030
     Dates: start: 20171217, end: 20171217
  6. CILOSTAZOL. [Concomitant]
     Active Substance: CILOSTAZOL
     Indication: VASCULAR DEMENTIA
     Dosage: 50MG, 1 TABLET IN THE MORNING AND 1 TABLET IN THE AFTERNOON
     Route: 048
  7. VICOG [Concomitant]
     Active Substance: VINPOCETINE
     Indication: VASCULAR DEMENTIA
     Dosage: 5MG TABLET THREE TIMES A DAY
     Route: 048
  8. RAZAPINA [Concomitant]
     Active Substance: MIRTAZAPINE
     Indication: DEPRESSION
     Dosage: 30MG ORALLY 1 TABLET AT NIGHT
     Route: 048
  9. INVANZ [Suspect]
     Active Substance: ERTAPENEM SODIUM
     Indication: URINARY TRACT INFECTION
     Dosage: UNK
     Route: 042
     Dates: start: 20171216, end: 20171216
  10. OMEPRAZOLE. [Concomitant]
     Active Substance: OMEPRAZOLE
     Indication: GASTRITIS
     Dosage: 1 TABLET
     Route: 048

REACTIONS (12)
  - Appetite disorder [Recovered/Resolved]
  - Malaise [Recovered/Resolved]
  - Delusion [Recovered/Resolved]
  - Product preparation error [Unknown]
  - Feeding disorder [Recovered/Resolved]
  - Syncope [Recovered/Resolved]
  - Hallucination [Recovered/Resolved]
  - Sedation [Recovered/Resolved]
  - Gait disturbance [Recovered/Resolved]
  - Senile dementia [Recovered/Resolved]
  - Speech disorder [Recovered/Resolved]
  - Somnolence [Recovered/Resolved]

NARRATIVE: CASE EVENT DATE: 20171219
